FAERS Safety Report 8418370-6 (Version None)
Quarter: 2012Q2

REPORT INFORMATION
  Report Type: 
  Country: None (occurrence: None)
  Receive Date: 20120607
  Receipt Date: 20120605
  Transmission Date: 20120825
  Serious: Yes (Hospitalization)
  Sender: FDA-Public Use
  Company Number: US-PFIZER INC-2012098694

PATIENT
  Sex: Female
  Weight: 54.422 kg

DRUGS (5)
  1. CHANTIX [Suspect]
     Dosage: 1 MG, 2X/DAY
     Route: 048
     Dates: start: 20120101, end: 20120420
  2. SPIRIVA [Concomitant]
     Indication: LUNG DISORDER
     Dosage: UNK
     Route: 055
  3. CHANTIX [Suspect]
     Indication: SMOKING CESSATION THERAPY
     Dosage: 0.5 MG, 1X/DAY
     Route: 048
     Dates: start: 20120130, end: 20120101
  4. ADVAIR DISKUS 100/50 [Concomitant]
     Indication: LUNG DISORDER
     Dosage: UNK
     Route: 055
  5. DIVALPROEX SODIUM [Concomitant]
     Indication: CONVULSION
     Dosage: UNK

REACTIONS (1)
  - RENAL FAILURE [None]
